FAERS Safety Report 9396854 (Version 1)
Quarter: 2013Q3

REPORT INFORMATION
  Report Type: Spontaneous
  Country: US (occurrence: None)
  Receive Date: 20130710
  Receipt Date: 20130710
  Transmission Date: 20140515
  Serious: Yes (Hospitalization, Other)
  Sender: FDA-Public Use
  Company Number: None

PATIENT
  Age: 66 Year
  Sex: Male
  Weight: 115 kg

DRUGS (3)
  1. XARELTO [Suspect]
     Indication: DEEP VEIN THROMBOSIS
     Route: 048
     Dates: start: 20130628, end: 20130707
  2. XARELTO [Suspect]
     Indication: GOUT
     Route: 048
     Dates: start: 20130628, end: 20130707
  3. XARELTO [Suspect]
     Indication: PAIN
     Route: 048
     Dates: start: 20130628, end: 20130707

REACTIONS (4)
  - Vomiting [None]
  - Hypotension [None]
  - Abdominal pain [None]
  - Haemorrhage [None]
